FAERS Safety Report 4683108-5 (Version None)
Quarter: 2005Q2

REPORT INFORMATION
  Report Type: 
  Country: None (occurrence: None)
  Receive Date: 20050602
  Receipt Date: 20050328
  Transmission Date: 20051028
  Serious: No
  Sender: FDA-Public Use
  Company Number: USA050394513

PATIENT
  Sex: Female

DRUGS (3)
  1. CYMBALTA [Suspect]
     Dosage: 60 MG
  2. EFFEXOR XR [Concomitant]
  3. WELLBUTRIN [Concomitant]

REACTIONS (2)
  - FEELING DRUNK [None]
  - TINNITUS [None]
